FAERS Safety Report 4548049-2 (Version None)
Quarter: 2005Q1

REPORT INFORMATION
  Report Type: 
  Country: None (occurrence: None)
  Receive Date: 20050104
  Receipt Date: 20050104
  Transmission Date: 20050727
  Serious: No
  Sender: FDA-Public Use
  Company Number: None

PATIENT
  Age: 25 Year
  Sex: Female
  Weight: 54.4316 kg

DRUGS (1)
  1. PAXIL CR [Suspect]
     Indication: PANIC ATTACK
     Dosage: 10MG-35MG   DAILY
     Dates: start: 20040805, end: 20041030

REACTIONS (6)
  - EYE PAIN [None]
  - MIGRAINE [None]
  - PHOTOPSIA [None]
  - PITUITARY ENLARGEMENT [None]
  - PUPILS UNEQUAL [None]
  - VISUAL FIELD DEFECT [None]
